FAERS Safety Report 26151641 (Version 1)
Quarter: 2025Q4

REPORT INFORMATION
  Report Type: Spontaneous
  Country: EU (occurrence: EU)
  Receive Date: 20251212
  Receipt Date: 20251212
  Transmission Date: 20260117
  Serious: Yes (Other)
  Sender: MYLAN
  Company Number: None

PATIENT
  Age: 81 Year
  Sex: Female
  Weight: 67 kg

DRUGS (24)
  1. AMIODARONE [Suspect]
     Active Substance: AMIODARONE
     Indication: Product used for unknown indication
     Dosage: 600 MILLIGRAM, QD
     Dates: start: 20251110, end: 20251111
  2. AMIODARONE [Suspect]
     Active Substance: AMIODARONE
     Dosage: 600 MILLIGRAM, QD
     Route: 048
     Dates: start: 20251110, end: 20251111
  3. AMIODARONE [Suspect]
     Active Substance: AMIODARONE
     Dosage: 600 MILLIGRAM, QD
     Route: 048
     Dates: start: 20251110, end: 20251111
  4. AMIODARONE [Suspect]
     Active Substance: AMIODARONE
     Dosage: 600 MILLIGRAM, QD
     Dates: start: 20251110, end: 20251111
  5. AMOXICILLIN\CLAVULANIC ACID [Suspect]
     Active Substance: AMOXICILLIN\CLAVULANIC ACID
     Indication: Infection
     Dosage: 1 GRAM, Q8H
     Dates: start: 20251109, end: 20251116
  6. AMOXICILLIN\CLAVULANIC ACID [Suspect]
     Active Substance: AMOXICILLIN\CLAVULANIC ACID
     Dosage: 1 GRAM, Q8H
     Route: 042
     Dates: start: 20251109, end: 20251116
  7. AMOXICILLIN\CLAVULANIC ACID [Suspect]
     Active Substance: AMOXICILLIN\CLAVULANIC ACID
     Dosage: 1 GRAM, Q8H
     Route: 042
     Dates: start: 20251109, end: 20251116
  8. AMOXICILLIN\CLAVULANIC ACID [Suspect]
     Active Substance: AMOXICILLIN\CLAVULANIC ACID
     Dosage: 1 GRAM, Q8H
     Dates: start: 20251109, end: 20251116
  9. FUROSEMIDE [Suspect]
     Active Substance: FUROSEMIDE
     Indication: Hypertension
     Dosage: 60 MILLIGRAM, QD
     Dates: start: 20251109, end: 20251111
  10. FUROSEMIDE [Suspect]
     Active Substance: FUROSEMIDE
     Dosage: 60 MILLIGRAM, QD
     Route: 042
     Dates: start: 20251109, end: 20251111
  11. FUROSEMIDE [Suspect]
     Active Substance: FUROSEMIDE
     Dosage: 60 MILLIGRAM, QD
     Route: 042
     Dates: start: 20251109, end: 20251111
  12. FUROSEMIDE [Suspect]
     Active Substance: FUROSEMIDE
     Dosage: 60 MILLIGRAM, QD
     Dates: start: 20251109, end: 20251111
  13. HEPARIN SODIUM [Suspect]
     Active Substance: HEPARIN SODIUM
     Indication: Pulmonary embolism
     Dosage: UNK
     Dates: start: 20251109, end: 20251110
  14. HEPARIN SODIUM [Suspect]
     Active Substance: HEPARIN SODIUM
     Dosage: UNK
     Route: 042
     Dates: start: 20251109, end: 20251110
  15. HEPARIN SODIUM [Suspect]
     Active Substance: HEPARIN SODIUM
     Dosage: UNK
     Route: 042
     Dates: start: 20251109, end: 20251110
  16. HEPARIN SODIUM [Suspect]
     Active Substance: HEPARIN SODIUM
     Dosage: UNK
     Dates: start: 20251109, end: 20251110
  17. ACETAMINOPHEN\OPIUM [Concomitant]
     Active Substance: ACETAMINOPHEN\OPIUM
     Indication: Analgesic intervention supportive therapy
     Dosage: 1 DOSAGE FORM, PRN (ON DEMAND)
  18. ACETAMINOPHEN\OPIUM [Concomitant]
     Active Substance: ACETAMINOPHEN\OPIUM
     Dosage: 1 DOSAGE FORM, PRN (ON DEMAND)
     Route: 048
  19. ACETAMINOPHEN\OPIUM [Concomitant]
     Active Substance: ACETAMINOPHEN\OPIUM
     Dosage: 1 DOSAGE FORM, PRN (ON DEMAND)
     Route: 048
  20. ACETAMINOPHEN\OPIUM [Concomitant]
     Active Substance: ACETAMINOPHEN\OPIUM
     Dosage: 1 DOSAGE FORM, PRN (ON DEMAND)
  21. IBUPROFEN [Concomitant]
     Active Substance: IBUPROFEN
     Indication: Analgesic intervention supportive therapy
     Dosage: 1 DOSAGE FORM, PRN (ON DEMAND)
  22. IBUPROFEN [Concomitant]
     Active Substance: IBUPROFEN
     Dosage: 1 DOSAGE FORM, PRN (ON DEMAND)
     Route: 048
  23. IBUPROFEN [Concomitant]
     Active Substance: IBUPROFEN
     Dosage: 1 DOSAGE FORM, PRN (ON DEMAND)
     Route: 048
  24. IBUPROFEN [Concomitant]
     Active Substance: IBUPROFEN
     Dosage: 1 DOSAGE FORM, PRN (ON DEMAND)

REACTIONS (1)
  - Acute generalised exanthematous pustulosis [Recovering/Resolving]

NARRATIVE: CASE EVENT DATE: 20251111
